FAERS Safety Report 16393434 (Version 1)
Quarter: 2019Q2

REPORT INFORMATION
  Report Type: Spontaneous
  Country: JP (occurrence: JP)
  Receive Date: 20190605
  Receipt Date: 20190605
  Transmission Date: 20190711
  Serious: Yes (Other)
  Sender: FDA-Public Use
  Company Number: JP-PFIZER INC-2019238585

PATIENT
  Age: 57 Year
  Sex: Male

DRUGS (2)
  1. CAMPTO [Suspect]
     Active Substance: IRINOTECAN
     Indication: COLON CANCER
     Dosage: UNK UNK, 1X/DAY
  2. ELPLAT [Suspect]
     Active Substance: OXALIPLATIN
     Indication: COLON CANCER
     Dosage: UNK UNK, 1X/DAY
     Route: 041

REACTIONS (4)
  - Hypoaesthesia [Unknown]
  - Musculoskeletal stiffness [Unknown]
  - Neuropathy peripheral [Unknown]
  - Diarrhoea [Unknown]
